FAERS Safety Report 5779913-4 (Version None)
Quarter: 2008Q2

REPORT INFORMATION
  Report Type: 
  Country: None (occurrence: None)
  Receive Date: 20080620
  Receipt Date: 20080606
  Transmission Date: 20081010
  Serious: Yes (Death, Hospitalization, Other)
  Sender: FDA-Public Use
  Company Number: US-BAYER-200821570NA

PATIENT
  Age: 65 Year
  Sex: Female

DRUGS (5)
  1. BETASERON [Suspect]
     Indication: RELAPSING-REMITTING MULTIPLE SCLEROSIS
     Dosage: TOTAL DAILY DOSE: 8 MIU
     Route: 058
     Dates: start: 19931214, end: 20080113
  2. LASIX [Concomitant]
     Dosage: TOTAL DAILY DOSE: 40 MG
     Route: 048
     Dates: end: 20080113
  3. TOPROL-XL [Concomitant]
     Dosage: TOTAL DAILY DOSE: 50 MG
     Route: 048
     Dates: end: 20080113
  4. DETROL LA [Concomitant]
     Dosage: TOTAL DAILY DOSE: 4 MG
     Route: 048
     Dates: end: 20080113
  5. PLAVIX [Concomitant]
     Dosage: TOTAL DAILY DOSE: 75 MG
     Route: 048
     Dates: end: 20080113

REACTIONS (3)
  - CEREBROVASCULAR ACCIDENT [None]
  - DEATH [None]
  - MULTIPLE SCLEROSIS [None]
